FAERS Safety Report 8436833-4 (Version None)
Quarter: 2012Q2

REPORT INFORMATION
  Report Type: 
  Country: None (occurrence: None)
  Receive Date: 20120614
  Receipt Date: 20120606
  Transmission Date: 20120825
  Serious: Yes (Death)
  Sender: FDA-Public Use
  Company Number: US-ROXANE LABORATORIES, INC.-2012-RO-01368RO

PATIENT
  Age: 54 Year
  Sex: Male

DRUGS (3)
  1. METHADONE HCL [Suspect]
     Indication: DRUG ABUSE
     Dosage: 10 ML
  2. COCAINE [Suspect]
  3. LIDOCAINE [Suspect]

REACTIONS (6)
  - ANIMAL BITE [None]
  - SPLENOMEGALY [None]
  - TOXICITY TO VARIOUS AGENTS [None]
  - DECAPITATION [None]
  - SCAR [None]
  - INFECTION [None]
